FAERS Safety Report 5499086-5 (Version None)
Quarter: 2007Q4

REPORT INFORMATION
  Report Type: 
  Country: None (occurrence: None)
  Receive Date: 20071026
  Receipt Date: 20070529
  Transmission Date: 20080405
  Serious: No
  Sender: FDA-Public Use
  Company Number: A0653227A

PATIENT
  Age: 66 Year
  Sex: Female

DRUGS (17)
  1. ADVAIR DISKUS 100/50 [Suspect]
     Dosage: 2PUFF TWICE PER DAY
     Route: 055
  2. CARTIA XT [Concomitant]
  3. NEXIUM [Concomitant]
  4. NEURONTIN [Concomitant]
  5. LEVOXYL [Concomitant]
  6. BACLOFEN [Concomitant]
  7. LASIX [Concomitant]
  8. REMERON [Concomitant]
  9. ENABLEX [Concomitant]
  10. LIPITOR [Concomitant]
  11. ASTHALIN [Concomitant]
  12. CENTRUM [Concomitant]
  13. KLOR-CON [Concomitant]
  14. UNKNOWN MEDICATION [Concomitant]
  15. FORTEO [Concomitant]
  16. POTASSIUM CHLORIDE [Concomitant]
  17. OSCAL [Concomitant]

REACTIONS (3)
  - DYSPHONIA [None]
  - OSTEOPOROSIS [None]
  - THROAT IRRITATION [None]
